FAERS Safety Report 21707121 (Version 2)
Quarter: 2023Q1

REPORT INFORMATION
  Report Type: Spontaneous
  Country: US (occurrence: US)
  Receive Date: 20221209
  Receipt Date: 20230111
  Transmission Date: 20230417
  Serious: No
  Sender: FDA-Public Use
  Company Number: US-PFIZER INC-PV202200120030

PATIENT
  Age: 49 Year
  Sex: Female

DRUGS (1)
  1. XELJANZ [Suspect]
     Active Substance: TOFACITINIB CITRATE
     Dosage: 5 MG
     Dates: end: 20230101

REACTIONS (5)
  - Hypertension [Unknown]
  - Drug ineffective [Unknown]
  - Product dose omission issue [Unknown]
  - Intentional product misuse [Unknown]
  - Mood swings [Unknown]
